FAERS Safety Report 5810728-4 (Version None)
Quarter: 2008Q3

REPORT INFORMATION
  Report Type: 
  Country: None (occurrence: None)
  Receive Date: 20080715
  Receipt Date: 20080703
  Transmission Date: 20090109
  Serious: Yes (Other)
  Sender: FDA-Public Use
  Company Number: US-CVT-080060

PATIENT

DRUGS (14)
  1. RANEXA [Suspect]
     Indication: ANGINA PECTORIS
     Dosage: 500 MG, BID
     Dates: start: 20080602, end: 20080617
  2. RANEXA [Suspect]
     Dosage: 500 MG, QD
     Dates: start: 20080601
  3. CRESTOR [Suspect]
     Indication: DRUG USE FOR UNKNOWN INDICATION
     Dosage: 5 MG, QD
     Dates: start: 20080527, end: 20080617
  4. COLCHICINE [Suspect]
     Indication: GOUT
     Dosage: 0.6 MG, QD
     Dates: start: 20080606, end: 20080617
  5. COLCHICINE [Suspect]
     Dosage: 0.6 MG, QD
     Dates: start: 20080708
  6. AMLODIPINE [Concomitant]
     Dosage: 5 MG, QD
  7. AVAPRO [Concomitant]
     Dosage: 300 MG, QD
     Dates: end: 20080527
  8. AVAPRO [Concomitant]
     Dosage: 150 MG, QD
     Dates: start: 20080527, end: 20080617
  9. AVAPRO [Concomitant]
     Dosage: 75 MG, QD
     Dates: start: 20080617
  10. ASPIRIN [Concomitant]
     Dosage: 325 MG, QD
  11. TOPROL-XL [Concomitant]
     Dosage: 100 MG, QD
  12. PLAVIX [Concomitant]
     Dosage: 75 MG, QD
  13. PRILOSEC [Concomitant]
     Dosage: 20 MG, QD
  14. NORVASC [Concomitant]
     Dosage: 5 MG, QD
     Dates: start: 20080527

REACTIONS (5)
  - DIARRHOEA [None]
  - GOUT [None]
  - HEPATIC STEATOSIS [None]
  - HEPATITIS [None]
  - HYPOTENSION [None]
